FAERS Safety Report 14003354 (Version 2)
Quarter: 2017Q4

REPORT INFORMATION
  Report Type: Report from Study
  Country: US (occurrence: US)
  Receive Date: 20170922
  Receipt Date: 20171003
  Transmission Date: 20180321
  Serious: Yes (Hospitalization)
  Sender: FDA-Public Use
  Company Number: US-ACTELION-A-US2015-119794

PATIENT
  Age: 65 Year
  Sex: Male
  Weight: 95.24 kg

DRUGS (5)
  1. VELETRI [Suspect]
     Active Substance: EPOPROSTENOL
     Dosage: 22 NG/KG, PER MIN
     Route: 042
     Dates: start: 20150611
  2. LETAIRIS [Suspect]
     Active Substance: AMBRISENTAN
     Indication: PRODUCT USED FOR UNKNOWN INDICATION
     Route: 065
  3. VELETRI [Suspect]
     Active Substance: EPOPROSTENOL
     Dosage: 26 NG/KG, PER MIN
     Route: 042
  4. VELETRI [Suspect]
     Active Substance: EPOPROSTENOL
     Indication: PULMONARY ARTERIAL HYPERTENSION
     Dosage: 10 NG/KG, PER MIN
     Route: 042
     Dates: start: 20150611
  5. SILDENAFIL. [Concomitant]
     Active Substance: SILDENAFIL

REACTIONS (28)
  - Catheter site dryness [Unknown]
  - Nasopharyngitis [Unknown]
  - Catheter management [Unknown]
  - Salivary hypersecretion [Unknown]
  - Back pain [Unknown]
  - Pain [Unknown]
  - Pain in jaw [Unknown]
  - Pain in extremity [Unknown]
  - Arthralgia [Unknown]
  - Device dislocation [Unknown]
  - Venous thrombosis [Unknown]
  - Headache [Unknown]
  - Rash erythematous [Unknown]
  - Dyspnoea [Unknown]
  - Sinus pain [Unknown]
  - Myalgia [Unknown]
  - Abdominal discomfort [Unknown]
  - Fluid retention [Unknown]
  - Hypotension [Unknown]
  - Device related infection [Unknown]
  - Weight decreased [Unknown]
  - Diarrhoea [Unknown]
  - Decreased appetite [Unknown]
  - Burning sensation [Unknown]
  - Skin irritation [Unknown]
  - Nausea [Unknown]
  - Petechiae [Unknown]
  - Abdominal distension [Unknown]

NARRATIVE: CASE EVENT DATE: 20170828
